FAERS Safety Report 11197115 (Version 1)
Quarter: 2015Q2

REPORT INFORMATION
  Report Type: Spontaneous
  Country: US (occurrence: US)
  Receive Date: 20150617
  Receipt Date: 20150617
  Transmission Date: 20150821
  Serious: Yes (Other)
  Sender: FDA-Public Use
  Company Number: US-TEVA-571289USA

PATIENT
  Sex: Female
  Weight: 71.73 kg

DRUGS (1)
  1. COPAXONE [Suspect]
     Active Substance: GLATIRAMER ACETATE
     Indication: MULTIPLE SCLEROSIS
     Dosage: 17.1429 MILLIGRAM DAILY;
     Route: 065

REACTIONS (3)
  - Oesophageal spasm [Not Recovered/Not Resolved]
  - Angina pectoris [Not Recovered/Not Resolved]
  - Gastritis [Not Recovered/Not Resolved]
